FAERS Safety Report 4638134-9 (Version None)
Quarter: 2005Q2

REPORT INFORMATION
  Report Type: 
  Country: None (occurrence: None)
  Receive Date: 20050418
  Receipt Date: 20050301
  Transmission Date: 20051028
  Serious: Yes (Life-Threatening, Hospitalization, Other)
  Sender: FDA-Public Use
  Company Number: PHNU2005DE01138

PATIENT
  Age: 87 Year
  Sex: Female

DRUGS (11)
  1. INDOMETHACIN [Suspect]
  2. VOLTAREN [Suspect]
     Indication: BACK PAIN
     Dosage: 50 MG DAILY
     Route: 048
     Dates: start: 20041224, end: 20041224
  3. TRAMADOL HCL [Suspect]
  4. DECORTIN [Concomitant]
     Dosage: 5 MG, QD
  5. NEXIUM [Concomitant]
     Dosage: 40 MG, QD
  6. DIGIMERCK MINOR [Concomitant]
     Dosage: 1 DF, QD
  7. ISOPTIN [Concomitant]
     Dosage: 120 MG, BID
  8. LASIX [Concomitant]
     Dosage: 40 MG, QD
  9. EUNERPAN [Concomitant]
     Dosage: 25 MG, QD
  10. SYMBICORT TURBUHALER [Concomitant]
     Dosage: 2 DF, BID
  11. KALITRANS [Concomitant]
     Dosage: 1 DF, QD

REACTIONS (37)
  - ALANINE AMINOTRANSFERASE INCREASED [None]
  - ANAPHYLACTIC SHOCK [None]
  - AORTIC ANEURYSM [None]
  - ARRHYTHMIA [None]
  - ASPARTATE AMINOTRANSFERASE INCREASED [None]
  - ATELECTASIS [None]
  - ATRIAL FIBRILLATION [None]
  - BLOOD ALKALINE PHOSPHATASE INCREASED [None]
  - BLOOD CREATININE DECREASED [None]
  - BLOOD CREATININE INCREASED [None]
  - BLOOD GLUCOSE INCREASED [None]
  - BLOOD LACTATE DEHYDROGENASE INCREASED [None]
  - BLOOD POTASSIUM INCREASED [None]
  - BLOOD SODIUM DECREASED [None]
  - BLOOD UREA INCREASED [None]
  - BRONCHIAL INFECTION [None]
  - C-REACTIVE PROTEIN INCREASED [None]
  - CARDIOGENIC SHOCK [None]
  - CHRONIC OBSTRUCTIVE AIRWAYS DISEASE EXACERBATED [None]
  - DEPENDENCE ON RESPIRATOR [None]
  - DIABETES MELLITUS [None]
  - DIVERTICULUM DUODENAL [None]
  - DRUG HYPERSENSITIVITY [None]
  - GAMMA-GLUTAMYLTRANSFERASE INCREASED [None]
  - HYPERSENSITIVITY [None]
  - INTUBATION [None]
  - NEUROGENIC BLADDER [None]
  - OSTEOARTHRITIS [None]
  - PLEURAL EFFUSION [None]
  - PROTEIN TOTAL ABNORMAL [None]
  - PROTEIN TOTAL INCREASED [None]
  - RED BLOOD CELL COUNT DECREASED [None]
  - RESUSCITATION [None]
  - THROMBOSIS [None]
  - TRANSIENT PSYCHOSIS [None]
  - URINE ANALYSIS ABNORMAL [None]
  - WHITE BLOOD CELL COUNT INCREASED [None]
